FAERS Safety Report 18806817 (Version 4)
Quarter: 2021Q3

REPORT INFORMATION
  Report Type: Report from Study
  Country: BR (occurrence: BR)
  Receive Date: 20210128
  Receipt Date: 20210713
  Transmission Date: 20211014
  Serious: Yes (Other)
  Sender: FDA-Public Use
  Company Number: BR-JNJFOC-20210135103

PATIENT
  Sex: Male
  Weight: 130 kg

DRUGS (10)
  1. VITAMINS NOS [Concomitant]
     Active Substance: VITAMINS
  2. LEFLUNOMIDE. [Concomitant]
     Active Substance: LEFLUNOMIDE
  3. SYNTHROID [Concomitant]
     Active Substance: LEVOTHYROXINE SODIUM
  4. CLOPIDOGREL [Concomitant]
     Active Substance: CLOPIDOGREL BISULFATE
  5. DULOXETINE HYDROCHLORIDE. [Concomitant]
     Active Substance: DULOXETINE HYDROCHLORIDE
  6. ALLOPURINOL. [Concomitant]
     Active Substance: ALLOPURINOL
  7. TECNOMET [METHOTREXATE] [Concomitant]
     Active Substance: METHOTREXATE
  8. SIMPONI [Suspect]
     Active Substance: GOLIMUMAB
     Indication: RHEUMATOID ARTHRITIS
     Route: 058
     Dates: start: 20140718
  9. PREDSIM [Concomitant]
     Active Substance: PREDNISOLONE
  10. DOXICYCLINE [DOXYCYCLINE] [Concomitant]
     Active Substance: DOXYCYCLINE

REACTIONS (2)
  - Patient-device incompatibility [Recovered/Resolved]
  - Device related infection [Recovered/Resolved]
